FAERS Safety Report 16729779 (Version 2)
Quarter: 2019Q3

REPORT INFORMATION
  Report Type: Spontaneous
  Country: US (occurrence: US)
  Receive Date: 20190822
  Receipt Date: 20190919
  Transmission Date: 20191005
  Serious: No
  Sender: FDA-Public Use
  Company Number: US-PFIZER INC-2019359259

PATIENT
  Age: 7 Year
  Sex: Female
  Weight: 17.69 kg

DRUGS (1)
  1. GENOTROPIN [Suspect]
     Active Substance: SOMATROPIN
     Indication: TURNER^S SYNDROME
     Dosage: 0.9 MG, DAILY
     Route: 058
     Dates: start: 201811

REACTIONS (1)
  - Headache [Unknown]
